FAERS Safety Report 4538560-2 (Version None)
Quarter: 2004Q4

REPORT INFORMATION
  Report Type: 
  Country: None (occurrence: None)
  Receive Date: 20041222
  Receipt Date: 20041220
  Transmission Date: 20050328
  Serious: Yes (Death, Life-Threatening, Hospitalization)
  Sender: FDA-Public Use
  Company Number: HQWYE169529OCT04

PATIENT
  Age: 84 Year
  Sex: Female

DRUGS (12)
  1. AMIODARONE HCL [Suspect]
     Indication: VENTRICULAR TACHYCARDIA
     Dosage: SEE IMAGE
     Route: 048
     Dates: start: 20000413, end: 20001110
  2. AMIODARONE HCL [Suspect]
     Indication: VENTRICULAR TACHYCARDIA
     Dosage: SEE IMAGE
     Route: 048
     Dates: start: 20001111, end: 20040116
  3. AMIODARONE HCL [Suspect]
     Indication: VENTRICULAR TACHYCARDIA
     Dosage: SEE IMAGE
     Route: 048
     Dates: start: 20040116, end: 20040514
  4. LISINOPRIL [Concomitant]
  5. BUFFERIN [Concomitant]
  6. NITRODERM [Concomitant]
  7. LOCHOL            (FLUVASTATIN SODIUM) [Concomitant]
  8. ALLOPURINOL [Concomitant]
  9. LASIX [Concomitant]
  10. ALDACTONE [Concomitant]
  11. ULCERMIN          (SUCRALFATE) [Concomitant]
  12. AMLODIPINE BESYLATE [Concomitant]

REACTIONS (13)
  - ANURIA [None]
  - ASCITES [None]
  - BRADYCARDIA [None]
  - COMA [None]
  - DEHYDRATION [None]
  - DEPRESSED LEVEL OF CONSCIOUSNESS [None]
  - GENERALISED OEDEMA [None]
  - HEPATIC FAILURE [None]
  - HYPOTENSION [None]
  - HYPOTHYROIDISM [None]
  - LUNG DISORDER [None]
  - RENAL FAILURE ACUTE [None]
  - SOMNOLENCE [None]
